FAERS Safety Report 21580865 (Version 2)
Quarter: 2023Q1

REPORT INFORMATION
  Report Type: Spontaneous
  Country: FI (occurrence: FI)
  Receive Date: 20221111
  Receipt Date: 20230106
  Transmission Date: 20230417
  Serious: Yes (Death, Other)
  Sender: FDA-Public Use
  Company Number: FI-SUN PHARMACEUTICAL INDUSTRIES LTD-2022RR-363116

PATIENT
  Age: 75 Year
  Sex: Male

DRUGS (1)
  1. ATORVASTATIN [Suspect]
     Active Substance: ATORVASTATIN
     Indication: Blood cholesterol increased
     Dosage: 10 MG DAILY
     Route: 048
     Dates: start: 202203, end: 202204

REACTIONS (8)
  - Pancreatitis necrotising [Fatal]
  - Escherichia sepsis [Fatal]
  - Cardiovascular insufficiency [Fatal]
  - Atrial fibrillation [Fatal]
  - Renal failure [Fatal]
  - Respiratory failure [Fatal]
  - Hepatic cirrhosis [Fatal]
  - Hypotension [Fatal]

NARRATIVE: CASE EVENT DATE: 20220407
